FAERS Safety Report 6206414-1 (Version None)
Quarter: 2009Q2

REPORT INFORMATION
  Report Type: 
  Country: None (occurrence: None)
  Receive Date: 20090528
  Receipt Date: 20090522
  Transmission Date: 20091009
  Serious: Yes (Hospitalization)
  Sender: FDA-Public Use
  Company Number: JP-B.I. PHARMACEUTICALS,INC./RIDGEFIELD-2007-BP-25020NB

PATIENT
  Sex: Male
  Weight: 60 kg

DRUGS (9)
  1. MICARDIS [Suspect]
     Indication: HYPERTENSION
     Dosage: 40MG
     Route: 048
     Dates: start: 20060831
  2. SIGMART [Concomitant]
     Dosage: 15MG
     Route: 048
     Dates: start: 20060606
  3. ASPIRIN [Concomitant]
     Indication: PROPHYLAXIS
     Dosage: 100MG
     Route: 048
     Dates: start: 20060801
  4. KREMEZIN [Concomitant]
     Indication: PROPHYLAXIS
     Dosage: 12G
     Route: 048
     Dates: start: 20060831
  5. ALDACTONE [Concomitant]
     Indication: CARDIAC FAILURE CHRONIC
     Dosage: 75MG
     Route: 048
     Dates: start: 20050128
  6. PANALDINE [Concomitant]
     Dosage: 200MG
     Route: 048
     Dates: end: 20070801
  7. ANPLAG [Concomitant]
     Dosage: 300MG
     Route: 048
     Dates: start: 20061220, end: 20070701
  8. GLIMICRON [Concomitant]
     Dosage: 40MG
     Route: 048
     Dates: start: 20050401, end: 20070701
  9. ADALAT CC [Concomitant]
     Dosage: 40MG
     Route: 048
     Dates: start: 20060801

REACTIONS (2)
  - ANGINA PECTORIS [None]
  - CARDIAC FAILURE CHRONIC [None]
